FAERS Safety Report 25366019 (Version 1)
Quarter: 2025Q2

REPORT INFORMATION
  Report Type: Spontaneous
  Country: GB (occurrence: GB)
  Receive Date: 20250528
  Receipt Date: 20250528
  Transmission Date: 20250716
  Serious: Yes (Hospitalization)
  Sender: ACCORD
  Company Number: None

PATIENT
  Age: 56 Year

DRUGS (17)
  1. APIXABAN [Suspect]
     Active Substance: APIXABAN
     Indication: Product used for unknown indication
  2. PROPRANOLOL [Concomitant]
     Active Substance: PROPRANOLOL HYDROCHLORIDE
  3. MIRTAZAPINE [Concomitant]
     Active Substance: MIRTAZAPINE
  4. AMLODIPINE [Concomitant]
     Active Substance: AMLODIPINE BESYLATE
  5. BECLOMETASONE, FORMOTEROL, GLYCOPYRRONIUM [Concomitant]
  6. ALBUTEROL [Concomitant]
     Active Substance: ALBUTEROL
  7. FUROSEMIDE [Concomitant]
     Active Substance: FUROSEMIDE
  8. ATORVASTATIN [Concomitant]
     Active Substance: ATORVASTATIN
  9. NITROGLYCERIN [Concomitant]
     Active Substance: NITROGLYCERIN
  10. RAMIPRIL [Concomitant]
     Active Substance: RAMIPRIL
  11. PREGABALIN [Concomitant]
     Active Substance: PREGABALIN
  12. MORPHINE [Concomitant]
     Active Substance: MORPHINE
  13. THIAMINE [Concomitant]
     Active Substance: THIAMINE
  14. OMEPRAZOLE [Concomitant]
     Active Substance: OMEPRAZOLE
  15. MORPHINE SULFATE [Concomitant]
     Active Substance: MORPHINE SULFATE
  16. FOLIC ACID [Concomitant]
     Active Substance: FOLIC ACID
  17. FLUOXETINE [Concomitant]
     Active Substance: FLUOXETINE HYDROCHLORIDE

REACTIONS (1)
  - Blister [Unknown]
